FAERS Safety Report 9996206 (Version 1)
Quarter: 2014Q1

REPORT INFORMATION
  Report Type: Spontaneous
  Country: CO (occurrence: CO)
  Receive Date: 20140311
  Receipt Date: 20140311
  Transmission Date: 20141002
  Serious: Yes (Death)
  Sender: FDA-Public Use
  Company Number: CO-PFIZER INC-2014070225

PATIENT
  Age: 87 Year
  Sex: Female

DRUGS (1)
  1. EFEXOR [Suspect]
     Indication: DEPRESSION
     Dosage: 150 MG, 1X/DAY
     Route: 048
     Dates: start: 2011

REACTIONS (1)
  - Aortic aneurysm [Fatal]
